FAERS Safety Report 9312401 (Version 1)
Quarter: 2013Q2

REPORT INFORMATION
  Report Type: Spontaneous
  Country: US (occurrence: US)
  Receive Date: 20130528
  Receipt Date: 20130528
  Transmission Date: 20140414
  Serious: No
  Sender: FDA-Public Use
  Company Number: US-BRISTOL-MYERS SQUIBB COMPANY-18733196

PATIENT
  Sex: 0

DRUGS (3)
  1. KOMBIGLYZE XR [Suspect]
     Route: 048
  2. ONGLYZA TABS 2.5 MG [Suspect]
  3. ONGLYZA TABS 5 MG [Suspect]

REACTIONS (1)
  - Circumstance or information capable of leading to medication error [Unknown]
